FAERS Safety Report 8320678-X (Version None)
Quarter: 2012Q2

REPORT INFORMATION
  Report Type: 
  Country: None (occurrence: None)
  Receive Date: 20120430
  Receipt Date: 20120419
  Transmission Date: 20120825
  Serious: Yes (Hospitalization)
  Sender: FDA-Public Use
  Company Number: NL-PFIZER INC-2012032813

PATIENT
  Age: 51 Year
  Sex: Male
  Weight: 83 kg

DRUGS (6)
  1. DEXAMETHASONE [Concomitant]
     Dosage: 0.5 MG, 1X/DAY
     Route: 048
     Dates: start: 20120118, end: 20120208
  2. LEVETIRACETAM [Concomitant]
     Indication: EPILEPSY
     Dosage: 500 MG, 2X/DAY
     Route: 048
     Dates: start: 20111019
  3. DEXAMETHASONE [Concomitant]
     Dosage: 1.5 MG, 2X/DAY
     Route: 048
     Dates: start: 20111231, end: 20120101
  4. TEMSIROLIMUS [Suspect]
     Indication: GLIOBLASTOMA
     Dosage: 25 MG, WEEKLY
     Route: 042
     Dates: start: 20111123, end: 20120201
  5. DEXAMETHASONE [Concomitant]
     Dosage: 1.5 MG, 1X/DAY
     Route: 048
     Dates: start: 20120102, end: 20120117
  6. PARACETAMOL [Concomitant]
     Indication: HEADACHE
     Dosage: 2000 MG (OR 3000 MG), AS NEEDED
     Route: 048
     Dates: start: 20120125

REACTIONS (1)
  - BRADYCARDIA [None]
